FAERS Safety Report 5909076-3 (Version None)
Quarter: 2008Q4

REPORT INFORMATION
  Report Type: 
  Country: None (occurrence: None)
  Receive Date: 20081006
  Receipt Date: 20080929
  Transmission Date: 20090506
  Serious: Yes (Other)
  Sender: FDA-Public Use
  Company Number: BR-ROCHE-584267

PATIENT
  Sex: Male
  Weight: 66 kg

DRUGS (2)
  1. ROACCUTAN [Suspect]
     Indication: ACNE
     Route: 048
     Dates: start: 20080620, end: 20080801
  2. ROACCUTAN [Suspect]
     Route: 048
     Dates: start: 20080901

REACTIONS (4)
  - DRY EYE [None]
  - EYE DISORDER [None]
  - EYE HAEMORRHAGE [None]
  - ULCERATIVE KERATITIS [None]
